FAERS Safety Report 11707821 (Version 1)
Quarter: 2015Q4

REPORT INFORMATION
  Report Type: Spontaneous
  Country: US (occurrence: US)
  Receive Date: 20151104
  Receipt Date: 20151104
  Transmission Date: 20160304
  Serious: No
  Sender: FDA-Public Use
  Company Number: US-ELI_LILLY_AND_COMPANY-US201012001230

PATIENT
  Age: 66 Year
  Sex: Female

DRUGS (5)
  1. FORTEO [Suspect]
     Active Substance: TERIPARATIDE
     Dosage: 20 UG, DAILY (1/D)
     Route: 065
  2. FORTEO [Suspect]
     Active Substance: TERIPARATIDE
     Indication: OSTEOPOROSIS
     Dosage: 20 UG, DAILY (1/D)
     Route: 065
     Dates: start: 20100916
  3. FORTEO [Suspect]
     Active Substance: TERIPARATIDE
     Dosage: 20 UG, QD
     Route: 065
  4. FORTEO [Suspect]
     Active Substance: TERIPARATIDE
     Dosage: 20 UG, DAILY (1/D)
     Route: 065
  5. CHEMOTHERAPEUTICS [Concomitant]
     Active Substance: UNSPECIFIED INGREDIENT
     Indication: NEOPLASM MALIGNANT

REACTIONS (17)
  - Gallbladder disorder [Unknown]
  - Arthropathy [Unknown]
  - Dyspnoea [Unknown]
  - Lymphadenectomy [Unknown]
  - Ulcer [Unknown]
  - Nasopharyngitis [Unknown]
  - Fall [Recovered/Resolved]
  - Gait disturbance [Unknown]
  - Malaise [Not Recovered/Not Resolved]
  - Pain [Unknown]
  - Movement disorder [Unknown]
  - Varicose vein [Unknown]
  - Fall [Recovered/Resolved]
  - Spider vein [Unknown]
  - Polypectomy [Unknown]
  - Musculoskeletal pain [Unknown]
  - Varicose vein ruptured [Unknown]

NARRATIVE: CASE EVENT DATE: 201104
